FAERS Safety Report 23841023 (Version 1)
Quarter: 2024Q2

REPORT INFORMATION
  Report Type: Report from Study
  Country: NO (occurrence: NO)
  Receive Date: 20240510
  Receipt Date: 20240510
  Transmission Date: 20240716
  Serious: Yes (Hospitalization, Other)
  Sender: FDA-Public Use
  Company Number: NO-ABBVIE-5751605

PATIENT
  Age: 57 Year
  Sex: Female

DRUGS (2)
  1. CARBIDOPA\LEVODOPA [Suspect]
     Active Substance: CARBIDOPA\LEVODOPA
     Indication: Parkinson^s disease
     Dosage: OCTOBER/NOVEMBER 2023
     Route: 050
     Dates: start: 202310
  2. CARBIDOPA\LEVODOPA [Suspect]
     Active Substance: CARBIDOPA\LEVODOPA

REACTIONS (7)
  - Hospitalisation [Unknown]
  - Nausea [Unknown]
  - Weight decreased [Recovering/Resolving]
  - Device dislocation [Recovered/Resolved]
  - Vomiting [Unknown]
  - Acute hepatic failure [Unknown]
  - Malnutrition [Unknown]

NARRATIVE: CASE EVENT DATE: 20230101
